FAERS Safety Report 5280168-8 (Version None)
Quarter: 2007Q1

REPORT INFORMATION
  Report Type: 
  Country: None (occurrence: None)
  Receive Date: 20070326
  Receipt Date: 20070326
  Transmission Date: 20070707
  Serious: Yes (Hospitalization)
  Sender: FDA-Public Use
  Company Number: None

PATIENT
  Age: 43 Year
  Sex: Male
  Weight: 113.3993 kg

DRUGS (2)
  1. DESYREL [Suspect]
     Indication: MENTAL DISORDER
     Dosage: 2 PILLS NIGHTLY
     Dates: start: 20060408, end: 20070325
  2. DESYREL [Suspect]
     Indication: SOMNOLENCE
     Dosage: 2 PILLS NIGHTLY
     Dates: start: 20060408, end: 20070325

REACTIONS (1)
  - NAUSEA [None]
